FAERS Safety Report 7549386-X (Version None)
Quarter: 2011Q2

REPORT INFORMATION
  Report Type: 
  Country: None (occurrence: None)
  Receive Date: 20110615
  Receipt Date: 20030501
  Transmission Date: 20111010
  Serious: Yes (Other)
  Sender: FDA-Public Use
  Company Number: PHHO2003CA03503

PATIENT
  Sex: Male
  Weight: 64.853 kg

DRUGS (5)
  1. NORVASC [Concomitant]
     Dosage: 10 MG
  2. DIOVAN [Suspect]
     Dosage: 160 MG
     Route: 048
  3. APO-PINDOL [Concomitant]
     Dosage: 10 MG
  4. APO-FUROSEMIDE [Concomitant]
     Dosage: 20 MG
  5. MONOPRIL [Concomitant]
     Dosage: 20 MG

REACTIONS (1)
  - MYOCARDIAL INFARCTION [None]
